FAERS Safety Report 13541406 (Version 3)
Quarter: 2017Q3

REPORT INFORMATION
  Report Type: Spontaneous
  Country: DE (occurrence: DE)
  Receive Date: 20170512
  Receipt Date: 20170714
  Transmission Date: 20171127
  Serious: Yes (Other)
  Sender: FDA-Public Use
  Company Number: DE-AMGEN-DEUSP2017048887

PATIENT
  Age: 66 Year
  Sex: Female
  Weight: 67.5 kg

DRUGS (17)
  1. AMLODIPIN (BESILAT) DEXCEL [Concomitant]
     Dosage: 5 MG, UNK
     Route: 048
     Dates: end: 20170327
  2. NOVAMINSULFON LICHTENSTEIN [Concomitant]
     Active Substance: METAMIZOLE SODIUM
     Dosage: 500 MG, AS NECESSARY
     Route: 048
  3. MADOPAR DEPOT [Concomitant]
     Active Substance: BENSERAZIDE HYDROCHLORIDE\LEVODOPA
     Dosage: UNK UNK, QD
     Route: 048
  4. DEKRISTOL [Concomitant]
     Active Substance: CHOLECALCIFEROL
     Dosage: 20000 IU, QWK
     Route: 048
     Dates: start: 20160701
  5. PROLIA [Suspect]
     Active Substance: DENOSUMAB
     Indication: OSTEOPOROSIS POSTMENOPAUSAL
     Dosage: 60 MG, Q6MO
     Route: 058
     Dates: start: 20170316
  6. VITAMIN D [Concomitant]
     Active Substance: CHOLECALCIFEROL
     Dosage: 20000 IU, UNK
  7. CLARIUM [Concomitant]
     Active Substance: CLARITHROMYCIN
     Dosage: 50 MG, QID
     Route: 048
  8. MOXOBETA [Concomitant]
     Dosage: 0.2 MG, UNK
     Route: 048
     Dates: end: 20170327
  9. CARVEDILOL 1A PHARMA [Concomitant]
     Active Substance: CARVEDILOL
     Dosage: 12.5 MG, BID
     Route: 048
  10. PANTOPRAZOLE [Concomitant]
     Active Substance: PANTOPRAZOLE
     Dosage: 20 MG, QD
     Route: 048
  11. ATORVASTATIN 1A PHARMA [Concomitant]
     Dosage: 20 MG, UNK
     Route: 048
  12. IRBESARTAN ACTAVIS [Concomitant]
     Active Substance: IRBESARTAN
     Dosage: 300 MG, QD
     Route: 048
  13. AZILECT [Concomitant]
     Active Substance: RASAGILINE MESYLATE
     Dosage: 1 MG, QD
     Route: 048
  14. LEVODOP NEURAXPHARM [Concomitant]
     Dosage: 100/25 MG TABS, TID
     Route: 048
  15. EINSALPHA [Concomitant]
     Dosage: 0.25 MUG, BID
     Route: 048
  16. HYDROCHLOROTHIAZIDE. [Concomitant]
     Active Substance: HYDROCHLOROTHIAZIDE
     Dosage: 25 MG, QD
     Route: 048
  17. CALCIUM SANDOZ [Concomitant]
     Active Substance: CALCIUM
     Dosage: UNK, BID
     Route: 048

REACTIONS (7)
  - Blood parathyroid hormone increased [Not Recovered/Not Resolved]
  - Blood calcium decreased [Recovering/Resolving]
  - Middle ear inflammation [Recovering/Resolving]
  - Vestibular disorder [Unknown]
  - Sudden hearing loss [Recovering/Resolving]
  - Blood creatinine increased [Recovering/Resolving]
  - Nausea [Recovering/Resolving]

NARRATIVE: CASE EVENT DATE: 20170319
